FAERS Safety Report 22352197 (Version 2)
Quarter: 2023Q2

REPORT INFORMATION
  Report Type: Spontaneous
  Country: US (occurrence: US)
  Receive Date: 20230522
  Receipt Date: 20230622
  Transmission Date: 20230721
  Serious: No
  Sender: FDA-Public Use
  Company Number: US-JNJFOC-20230549274

PATIENT
  Age: 74 Year
  Sex: Male
  Weight: 96.248 kg

DRUGS (9)
  1. DARZALEX FASPRO [Suspect]
     Active Substance: DARATUMUMAB\HYALURONIDASE-FIHJ
     Indication: Plasma cell myeloma
     Dosage: FOR 8 WEEKS
     Route: 058
     Dates: start: 20230413
  2. DARZALEX FASPRO [Suspect]
     Active Substance: DARATUMUMAB\HYALURONIDASE-FIHJ
     Route: 058
  3. POMALYST [Suspect]
     Active Substance: POMALIDOMIDE
     Indication: Plasma cell myeloma
     Dates: start: 20230413
  4. SIMVASTATIN [Concomitant]
     Active Substance: SIMVASTATIN
     Indication: Blood cholesterol
  5. LOSARTAN [Concomitant]
     Active Substance: LOSARTAN
     Indication: Blood pressure measurement
  6. MELATONIN [Concomitant]
     Active Substance: MELATONIN
     Indication: Product used for unknown indication
  7. TADALAFIL [Concomitant]
     Active Substance: TADALAFIL
     Indication: Prostatomegaly
  8. MORNIFLUMATE [Concomitant]
     Active Substance: MORNIFLUMATE
     Indication: Prostatomegaly
  9. DEXAMETHASONE [Concomitant]
     Active Substance: DEXAMETHASONE
     Indication: Product used for unknown indication

REACTIONS (6)
  - Urticaria [Recovered/Resolved]
  - Faeces hard [Recovered/Resolved]
  - Infection [Recovered/Resolved]
  - Urinary incontinence [Recovered/Resolved]
  - Memory impairment [Unknown]
  - Nonspecific reaction [Unknown]
